FAERS Safety Report 8243684-2 (Version None)
Quarter: 2012Q1

REPORT INFORMATION
  Report Type: 
  Country: None (occurrence: None)
  Receive Date: 20120329
  Receipt Date: 20120322
  Transmission Date: 20120608
  Serious: Yes (Death)
  Sender: FDA-Public Use
  Company Number: JP-MEDIMMUNE-MEDI-0015281

PATIENT
  Sex: Female

DRUGS (7)
  1. FUROSEMIDE [Concomitant]
     Route: 048
  2. ERYTHROMYCIN ETHYLSUCCINATE [Concomitant]
     Route: 048
  3. PRANLUKAST HYDRATE [Concomitant]
     Route: 048
  4. L-CARBOCISTEINE [Concomitant]
     Route: 048
  5. AMBROXOL HYDROCHLORIDE [Concomitant]
     Route: 048
  6. INULIN [Concomitant]
     Route: 042
  7. SYNAGIS [Suspect]
     Route: 030
     Dates: start: 20110907, end: 20111013

REACTIONS (5)
  - BRADYCARDIA [None]
  - CARDIAC ARREST [None]
  - PALLOR [None]
  - CRYING [None]
  - RESPIRATORY ARREST [None]
